FAERS Safety Report 6216006-6 (Version None)
Quarter: 2009Q2

REPORT INFORMATION
  Report Type: 
  Country: None (occurrence: None)
  Receive Date: 20090605
  Receipt Date: 20090526
  Transmission Date: 20091009
  Serious: Yes (Other)
  Sender: FDA-Public Use
  Company Number: PHHY2009US20861

PATIENT
  Age: 49 Year
  Sex: Female

DRUGS (1)
  1. ZOLEDRONIC ACID [Suspect]
     Indication: BREAST CANCER METASTATIC

REACTIONS (16)
  - BONE EROSION [None]
  - BONE FRAGMENTATION [None]
  - EPISTAXIS [None]
  - FACIAL PAIN [None]
  - GINGIVAL SWELLING [None]
  - LIGAMENT DISORDER [None]
  - NASAL CONGESTION [None]
  - NASAL POLYPS [None]
  - OROANTRAL FISTULA [None]
  - OSTEONECROSIS [None]
  - OSTEOSCLEROSIS [None]
  - PAIN IN JAW [None]
  - PARAESTHESIA [None]
  - PARAESTHESIA ORAL [None]
  - PRIMARY SEQUESTRUM [None]
  - PURULENT DISCHARGE [None]
